FAERS Safety Report 8959282 (Version 1)
Quarter: 2012Q4

REPORT INFORMATION
  Report Type: 
  Country: ES (occurrence: ES)
  Receive Date: 20121212
  Receipt Date: 20121212
  Transmission Date: 20130627
  Serious: Yes (Other)
  Sender: FDA-Public Use
  Company Number: ES-ELI_LILLY_AND_COMPANY-ES201211009387

PATIENT
  Sex: Female

DRUGS (2)
  1. FORSTEO [Suspect]
     Dosage: UNK
     Dates: start: 20121015, end: 201210
  2. FORSTEO [Suspect]
     Dosage: UNK
     Dates: start: 20121122

REACTIONS (2)
  - Blindness transient [Unknown]
  - Vision blurred [Unknown]
